FAERS Safety Report 5696304-5 (Version None)
Quarter: 2008Q2

REPORT INFORMATION
  Report Type: 
  Country: None (occurrence: None)
  Receive Date: 20080407
  Receipt Date: 20080212
  Transmission Date: 20081010
  Serious: Yes (Other)
  Sender: FDA-Public Use
  Company Number: US-PURDUE-USA_2008_0032072

PATIENT
  Age: 49 Year
  Sex: Male

DRUGS (1)
  1. OXYCONTIN [Suspect]
     Indication: NECK PAIN
     Dates: start: 20000901, end: 20010901

REACTIONS (2)
  - CEREBROVASCULAR ACCIDENT [None]
  - DEPENDENCE [None]
